FAERS Safety Report 6696671-X (Version None)
Quarter: 2010Q2

REPORT INFORMATION
  Report Type: 
  Country: None (occurrence: None)
  Receive Date: 20100426
  Receipt Date: 20100412
  Transmission Date: 20101027
  Serious: No
  Sender: FDA-Public Use
  Company Number: US-B.I. PHARMACEUTICALS,INC./RIDGEFIELD-2009-BP-14945BP

PATIENT
  Sex: Male

DRUGS (7)
  1. SPIRIVA [Suspect]
     Indication: CHRONIC OBSTRUCTIVE PULMONARY DISEASE
     Dosage: 18 MCG
     Route: 055
     Dates: start: 20081201
  2. BETAPACE [Concomitant]
     Indication: ATRIAL FIBRILLATION
  3. IMDUR [Concomitant]
     Indication: BLOOD DISORDER
  4. LIPITOR [Concomitant]
     Indication: BLOOD CHOLESTEROL
  5. ZETIA [Concomitant]
     Indication: BLOOD CHOLESTEROL
  6. DIAZAPAM [Concomitant]
     Indication: CARDIAC DISORDER
  7. COUMADIN [Concomitant]
     Indication: ATRIAL FIBRILLATION

REACTIONS (1)
  - DRUG INEFFECTIVE [None]
